FAERS Safety Report 11299283 (Version 1)
Quarter: 2015Q3

REPORT INFORMATION
  Report Type: Spontaneous
  Country: US (occurrence: US)
  Receive Date: 20150722
  Receipt Date: 20150722
  Transmission Date: 20151125
  Serious: No
  Sender: FDA-Public Use
  Company Number: US-ELI_LILLY_AND_COMPANY-US201209002387

PATIENT
  Sex: Female

DRUGS (3)
  1. EVISTA [Suspect]
     Active Substance: RALOXIFENE HYDROCHLORIDE
     Indication: OSTEOPOROSIS
     Dosage: 60 MG, QD
  2. PROTONIX [Concomitant]
     Active Substance: PANTOPRAZOLE SODIUM
     Indication: GASTROOESOPHAGEAL REFLUX DISEASE
     Dosage: UNK
  3. AXID [Concomitant]
     Active Substance: NIZATIDINE
     Dosage: UNK

REACTIONS (5)
  - Gastrooesophageal reflux disease [Unknown]
  - Dyspepsia [Recovering/Resolving]
  - Malaise [Unknown]
  - Chest pain [Unknown]
  - Abdominal discomfort [Unknown]
